FAERS Safety Report 6716031-2 (Version None)
Quarter: 2010Q2

REPORT INFORMATION
  Report Type: 
  Country: None (occurrence: None)
  Receive Date: 20100507
  Receipt Date: 20100505
  Transmission Date: 20101027
  Serious: Yes (Other)
  Sender: FDA-Public Use
  Company Number: A0605595A

PATIENT
  Age: 59 Year
  Sex: Female

DRUGS (4)
  1. COREG [Suspect]
     Indication: DRUG USE FOR UNKNOWN INDICATION
     Dosage: 3.125MG TWICE PER DAY
     Route: 048
     Dates: start: 20051001
  2. COREG CR [Suspect]
     Dosage: 10MG PER DAY
     Route: 048
  3. ASPIRIN [Concomitant]
  4. CRESTOR [Concomitant]

REACTIONS (6)
  - ABDOMINAL DISCOMFORT [None]
  - BLOOD CALCIUM INCREASED [None]
  - DYSPEPSIA [None]
  - NEPHROLITHIASIS [None]
  - VERTIGO [None]
  - WEIGHT INCREASED [None]
